FAERS Safety Report 20596200 (Version 1)
Quarter: 2022Q1

REPORT INFORMATION
  Report Type: Report from Study
  Country: US (occurrence: US)
  Receive Date: 20220315
  Receipt Date: 20220315
  Transmission Date: 20220423
  Serious: Yes (Other)
  Sender: FDA-Public Use
  Company Number: US-BAUSCH-BL-2021-028450

PATIENT
  Age: 76 Year
  Sex: Male

DRUGS (16)
  1. XIFAXAN [Suspect]
     Active Substance: RIFAXIMIN
     Indication: Hepatic encephalopathy
     Dosage: 18 TABS
     Route: 048
     Dates: start: 20210805
  2. LACTULOSE [Concomitant]
     Active Substance: LACTULOSE
     Indication: Hepatic encephalopathy
  3. EMPAGLIFLOZIN-LINAGLIPTIN [Concomitant]
     Indication: Product used for unknown indication
     Dosage: 25-5MG TAKE BY MOUTH TWICE DAILY
     Route: 048
  4. FINASTERIDE [Concomitant]
     Active Substance: FINASTERIDE
     Indication: Product used for unknown indication
     Dosage: TAKE 1 TAB EVERY DAY 3 REFILLS
     Route: 048
     Dates: start: 20200928
  5. FUROSEMIDE [Concomitant]
     Active Substance: FUROSEMIDE
     Indication: Product used for unknown indication
     Dosage: 40MG TAKE BY MOUTH TWICE DAILY
     Route: 048
  6. GLIMEPIRIDE [Concomitant]
     Active Substance: GLIMEPIRIDE
     Indication: Product used for unknown indication
     Route: 048
  7. HYDROXYZINE HYDROCHLORIDE [Concomitant]
     Active Substance: HYDROXYZINE HYDROCHLORIDE
     Indication: Product used for unknown indication
     Dosage: 50MG TAKE BY MOUTH EVERY 8 HOURS AS NEEDED
     Route: 048
  8. INSULIN NPH HUM/REG INSULIN HM [Concomitant]
     Indication: Product used for unknown indication
     Dosage: 20 UNITS TWICE DAILY
  9. METHYLCELLULOSE LAXATIVE [Concomitant]
     Indication: Product used for unknown indication
     Dosage: TAKE 1250 MG BY MOUTH DAILY
     Route: 048
  10. METOPROLOL SUCCINATE [Concomitant]
     Active Substance: METOPROLOL SUCCINATE
     Indication: Product used for unknown indication
     Dosage: TAKE 50 MG BY MOUTH DAILY
     Route: 048
  11. OMEPRAZOLE [Concomitant]
     Active Substance: OMEPRAZOLE
     Indication: Product used for unknown indication
     Dosage: TAKE 1 (20 MG TOTAL) MOUTH DAILY DO NOT CHEW, CRUSH OR OPEN CAPSULES
     Route: 048
     Dates: start: 20211007
  12. PRAMIPEXOLE [Concomitant]
     Active Substance: PRAMIPEXOLE
     Indication: Product used for unknown indication
     Dosage: TAKE 0.25 MG MOUTH DAILY ORAL
     Route: 048
     Dates: start: 20180731
  13. RIFAMPIN [Concomitant]
     Active Substance: RIFAMPIN
     Indication: Product used for unknown indication
     Dosage: TAKE 1 CAPSULE 150MG MOUTH DAILY TWICE DAILY ORAL
     Route: 048
     Dates: start: 20210705, end: 20211028
  14. SPIRONOLACTONE [Concomitant]
     Active Substance: SPIRONOLACTONE
     Indication: Product used for unknown indication
     Dosage: TAKE 1 TAB 100MG MOUTH DAILY ORAL
     Route: 048
     Dates: start: 20211007
  15. SPIRONOLACTONE [Concomitant]
     Active Substance: SPIRONOLACTONE
     Dosage: TAKE 1 TAB 50MG MOUTH DAILY ORAL
     Route: 048
     Dates: start: 20211007
  16. TAMSULOSIN [Concomitant]
     Active Substance: TAMSULOSIN
     Indication: Product used for unknown indication
     Dosage: TAKE 1 CAPSULE EVERY DAY ).24HR ORAL CAPSULE
     Route: 048
     Dates: start: 20210104

REACTIONS (2)
  - Weight decreased [Unknown]
  - Inability to afford medication [Unknown]
